FAERS Safety Report 11172980 (Version 3)
Quarter: 2015Q3

REPORT INFORMATION
  Report Type: Spontaneous
  Country: JP (occurrence: JP)
  Receive Date: 20150608
  Receipt Date: 20150706
  Transmission Date: 20151125
  Serious: Yes (Other)
  Sender: FDA-Public Use
  Company Number: JP-BAYER-2015-279675

PATIENT
  Age: 84 Year
  Sex: Female

DRUGS (3)
  1. BAYASPIRIN [Suspect]
     Active Substance: ASPIRIN
     Indication: ANGINA UNSTABLE
     Dosage: DAILY DOSE 100 MG
     Route: 048
  2. PLAVIX [Interacting]
     Active Substance: CLOPIDOGREL BISULFATE
     Indication: PREMEDICATION
     Dosage: DAILY DOSE 300 MG
     Route: 048
  3. UNFRACTIONATED HEPARIN [Interacting]
     Active Substance: HEPARIN SODIUM
     Dosage: UNK
     Route: 042

REACTIONS (7)
  - Skin necrosis [Recovering/Resolving]
  - Vascular pseudoaneurysm [Recovering/Resolving]
  - Vessel puncture site reaction [None]
  - Skin exfoliation [Recovering/Resolving]
  - Puncture site haemorrhage [None]
  - Puncture site swelling [None]
  - Labelled drug-drug interaction medication error [None]

NARRATIVE: CASE EVENT DATE: 20140221
